FAERS Safety Report 18196374 (Version 1)
Quarter: 2020Q3

REPORT INFORMATION
  Report Type: Spontaneous
  Country: US (occurrence: US)
  Receive Date: 20200825
  Receipt Date: 20200825
  Transmission Date: 20201103
  Serious: Yes (Other)
  Sender: FDA-Public Use
  Company Number: None

PATIENT
  Age: 97 Year
  Sex: Female
  Weight: 51.57 kg

DRUGS (12)
  1. GENTAMICIN. [Concomitant]
     Active Substance: GENTAMICIN
  2. ASPIRIN. [Concomitant]
     Active Substance: ASPIRIN
  3. AMOXICILLIN. [Concomitant]
     Active Substance: AMOXICILLIN
  4. GABAPENTIN. [Concomitant]
     Active Substance: GABAPENTIN
  5. SYNTHROID [Concomitant]
     Active Substance: LEVOTHYROXINE SODIUM
  6. MUPIROCIN. [Concomitant]
     Active Substance: MUPIROCIN
  7. LEUKERAN [Suspect]
     Active Substance: CHLORAMBUCIL
     Indication: ACUTE LYMPHOCYTIC LEUKAEMIA
     Route: 048
     Dates: start: 20190814
  8. BACTRIM DS [Concomitant]
     Active Substance: SULFAMETHOXAZOLE\TRIMETHOPRIM
  9. LIDOCAINE. [Concomitant]
     Active Substance: LIDOCAINE
  10. LOPERAMIDE A?D [Concomitant]
  11. HUMALOG [Concomitant]
     Active Substance: INSULIN LISPRO
  12. METOPROLOL. [Concomitant]
     Active Substance: METOPROLOL

REACTIONS (7)
  - Balance disorder [None]
  - Cough [None]
  - Fatigue [None]
  - Confusional state [None]
  - Ear swelling [None]
  - Dysphonia [None]
  - Eye swelling [None]

NARRATIVE: CASE EVENT DATE: 20200825
